FAERS Safety Report 8402981-8 (Version None)
Quarter: 2012Q2

REPORT INFORMATION
  Report Type: 
  Country: None (occurrence: None)
  Receive Date: 20120601
  Receipt Date: 20120530
  Transmission Date: 20120825
  Serious: Yes (Death)
  Sender: FDA-Public Use
  Company Number: SE-B.I. PHARMACEUTICALS,INC./RIDGEFIELD-2012-SW-00439SW

PATIENT
  Sex: Male

DRUGS (4)
  1. PRADAXA [Suspect]
     Indication: ATRIAL FIBRILLATION
     Dosage: 220 MG
     Dates: start: 20120430, end: 20120506
  2. METOPROLOL TARTRATE [Concomitant]
     Indication: ANGINA PECTORIS
     Dosage: 100 MG
     Dates: start: 20101028
  3. EZETIMIBE [Concomitant]
     Indication: HYPERLIPIDAEMIA
     Dosage: 10 MG
     Dates: start: 20101028
  4. RAMIPRIL [Concomitant]
     Indication: HYPERTENSION
     Dates: start: 20101028

REACTIONS (1)
  - MYOCARDIAL INFARCTION [None]
